FAERS Safety Report 9206392 (Version 1)
Quarter: 2013Q2

REPORT INFORMATION
  Report Type: Spontaneous
  Country: US (occurrence: None)
  Receive Date: 20130401
  Receipt Date: 20130401
  Transmission Date: 20140414
  Serious: No
  Sender: FDA-Public Use
  Company Number: None

PATIENT
  Age: 42 Year
  Sex: Female

DRUGS (1)
  1. ENBREL SURECLICK [Suspect]
     Indication: PSORIASIS
     Route: 058
     Dates: start: 20121106, end: 20121227

REACTIONS (5)
  - Psoriasis [None]
  - Fatigue [None]
  - Malaise [None]
  - Nasopharyngitis [None]
  - Lethargy [None]
